FAERS Safety Report 4883242-0 (Version None)
Quarter: 2006Q1

REPORT INFORMATION
  Report Type: 
  Country: None (occurrence: None)
  Receive Date: 20060117
  Receipt Date: 20060117
  Transmission Date: 20060701
  Serious: Yes (Hospitalization)
  Sender: FDA-Public Use
  Company Number: None

PATIENT
  Age: 78 Year
  Sex: Female
  Weight: 95.2554 kg

DRUGS (19)
  1. FORTAZ [Suspect]
     Indication: OSTEOMYELITIS
     Dosage: 2 GRAMS Q 8 H IV DRIP
     Route: 041
     Dates: start: 20051226, end: 20060103
  2. FORTAZ [Suspect]
     Indication: PSEUDOMONAS INFECTION
     Dosage: 2 GRAMS Q 8 H IV DRIP
     Route: 041
     Dates: start: 20051226, end: 20060103
  3. NOVOLIN INSULIN [Concomitant]
  4. AMARYL3 [Concomitant]
  5. ARIMIDEX [Concomitant]
  6. CELEBREX [Concomitant]
  7. NIFEREX [Concomitant]
  8. LANTUS [Concomitant]
  9. LEXAPRO [Concomitant]
  10. MEGESTROL [Concomitant]
  11. MIRTAZAPINE [Concomitant]
  12. NOVOLOG [Concomitant]
  13. SYNTHROID [Concomitant]
  14. SENNA [Concomitant]
  15. MULTIVIT [Concomitant]
  16. TIMOPTIC [Concomitant]
  17. VYTORIN [Concomitant]
  18. ZINC [Concomitant]
  19. METHYLPHENIDATE HCL [Concomitant]

REACTIONS (3)
  - ASTERIXIS [None]
  - ASTHENIA [None]
  - MYOCLONUS [None]
